FAERS Safety Report 21721960 (Version 1)
Quarter: 2022Q4

REPORT INFORMATION
  Report Type: Spontaneous
  Country: US (occurrence: US)
  Receive Date: 20221213
  Receipt Date: 20221213
  Transmission Date: 20230113
  Serious: Yes (Hospitalization, Other)
  Sender: FDA-Public Use
  Company Number: US-JUBILANT CADISTA PHARMACEUTICALS-2022JUB00465

PATIENT
  Age: 82 Year
  Sex: Female
  Weight: 67.5 kg

DRUGS (3)
  1. LEVOFLOXACIN [Suspect]
     Active Substance: LEVOFLOXACIN
     Indication: Urinary tract infection
     Dosage: 750 MG, 1 TOTAL
     Route: 048
  2. LEVOFLOXACIN [Suspect]
     Active Substance: LEVOFLOXACIN
     Indication: Escherichia infection
     Dosage: 750 MG, 1 TOTAL
     Route: 042
  3. QUETIAPINE [Concomitant]
     Active Substance: QUETIAPINE
     Dosage: 50 MG, 1 DAY
     Route: 048

REACTIONS (2)
  - Myoclonus [Recovered/Resolved]
  - Neurotoxicity [Recovered/Resolved]
